FAERS Safety Report 12718876 (Version 1)
Quarter: 2016Q3

REPORT INFORMATION
  Report Type: Other
  Country: US (occurrence: US)
  Receive Date: 20160906
  Receipt Date: 20160906
  Transmission Date: 20161109
  Serious: No
  Sender: FDA-Public Use
  Company Number: US-COL_20234_2015

PATIENT
  Age: 68 Year
  Sex: Female

DRUGS (2)
  1. COLGATE TOTAL ADVANCED WHITENING [Suspect]
     Active Substance: SODIUM FLUORIDE\TRICLOSAN
     Dosage: A PEA SIZE AMOUNT OR A LITTLE MORE TO THE HEAD OF TOOTHBRUSH/BID/
     Route: 048
     Dates: start: 201507
  2. COLGATE TOTAL ADVANCED WHITENING [Suspect]
     Active Substance: SODIUM FLUORIDE\TRICLOSAN
     Indication: PRODUCT USED FOR UNKNOWN INDICATION
     Dosage: A PEA SIZE AMOUNT OR A LITTLE MORE TO THE HEAD OF TOOTHBRUSH/BID/
     Route: 048

REACTIONS (2)
  - Lip dry [Not Recovered/Not Resolved]
  - Product physical consistency issue [Not Recovered/Not Resolved]

NARRATIVE: CASE EVENT DATE: 201507
